FAERS Safety Report 21936237 (Version 1)
Quarter: 2023Q1

REPORT INFORMATION
  Report Type: Spontaneous
  Country: US (occurrence: None)
  Receive Date: 20230131
  Receipt Date: 20230131
  Transmission Date: 20230418
  Serious: No
  Sender: FDA-Public Use
  Company Number: None

PATIENT
  Age: 62 Year
  Sex: Male

DRUGS (1)
  1. FORTEO [Suspect]
     Active Substance: TERIPARATIDE
     Indication: Osteoporosis
     Dosage: OTHER STRENGTH : 250 UG/ML;?FREQUENCY : DAILY;?
     Route: 058
     Dates: start: 20220817

REACTIONS (2)
  - Device issue [None]
  - Drug dose omission by device [None]

NARRATIVE: CASE EVENT DATE: 20230129
